FAERS Safety Report 20003578 (Version 1)
Quarter: 2021Q4

REPORT INFORMATION
  Report Type: Spontaneous
  Country: US (occurrence: US)
  Receive Date: 20211027
  Receipt Date: 20211027
  Transmission Date: 20220303
  Serious: Yes (Other)
  Sender: FDA-Public Use
  Company Number: US-LANNETT COMPANY, INC.-US-2021LAN000088

PATIENT
  Age: 35 Year
  Sex: Female

DRUGS (1)
  1. BUTALBITAL, ACETAMINOPHEN, AND CAFFEINE [Suspect]
     Active Substance: ACETAMINOPHEN\BUTALBITAL\CAFFEINE
     Dosage: UNK
     Route: 065
     Dates: start: 2018

REACTIONS (4)
  - Anaphylactic reaction [Unknown]
  - Food allergy [Not Recovered/Not Resolved]
  - Arthropod bite [Unknown]
  - Rash [Unknown]

NARRATIVE: CASE EVENT DATE: 20210201
